FAERS Safety Report 8447590-X (Version None)
Quarter: 2012Q2

REPORT INFORMATION
  Report Type: 
  Country: None (occurrence: None)
  Receive Date: 20120619
  Receipt Date: 20120612
  Transmission Date: 20120825
  Serious: Yes (Hospitalization)
  Sender: FDA-Public Use
  Company Number: ES-ELI_LILLY_AND_COMPANY-ES201206004028

PATIENT
  Sex: Female
  Weight: 65 kg

DRUGS (13)
  1. ASPIRIN [Concomitant]
     Indication: TACHYCARDIA
     Dosage: UNK, QD
     Route: 058
  2. CALCIFEROL [Concomitant]
     Indication: BONE DISORDER
     Dosage: UNK, 2/M
     Route: 048
  3. FUROSEMIDE [Concomitant]
     Indication: DYSURIA
     Dosage: 40 MG, QD
     Route: 048
  4. TRAMADOL HCL [Concomitant]
     Indication: PAIN
     Dosage: 50 MG, QD
     Route: 048
  5. ALBUTEROL [Concomitant]
     Indication: ASTHMA
     Dosage: 100 UG, EVERY 6 HRS
     Route: 055
  6. FORTEO [Suspect]
     Indication: OSTEOPOROSIS
     Dosage: 20 UG, QD
     Route: 058
     Dates: start: 20110218, end: 20120301
  7. PREDNISONE [Concomitant]
     Indication: ASTHMA
     Dosage: UNK, QD
     Route: 048
  8. SPIRIVA [Concomitant]
     Indication: ASTHMA
     Dosage: 100 UG, QD
     Route: 055
  9. ESOMEPRAZOL                        /01479301/ [Concomitant]
     Indication: GASTRIC DISORDER
     Dosage: UNK, QD
     Route: 048
  10. AMIODARONE HCL [Concomitant]
     Indication: CARDIAC DISORDER
     Dosage: 200 DF, QD
     Route: 048
  11. LORMETAZEPAM [Concomitant]
     Indication: SLEEP DISORDER
     Dosage: 1 MG, QD
     Route: 048
  12. ATROVENT [Concomitant]
     Indication: ASTHMA
     Dosage: 20 UG, EVERY 6 HRS
     Route: 055
  13. LACTITOL [Concomitant]
     Indication: CONSTIPATION
     Dosage: 10 G, TID
     Route: 048

REACTIONS (2)
  - CARDIAC FAILURE [None]
  - GASTRIC ULCER [None]
